FAERS Safety Report 6564937-X (Version None)
Quarter: 2010Q1

REPORT INFORMATION
  Report Type: 
  Country: None (occurrence: None)
  Receive Date: 20100128
  Receipt Date: 20100111
  Transmission Date: 20100710
  Serious: No
  Sender: FDA-Public Use
  Company Number: 2010-00031

PATIENT
  Age: 90 Year
  Sex: Female
  Weight: 86.1834 kg

DRUGS (13)
  1. COLD REMEDY RAPIDMELTS WITH VITAMIN C AND ECHINACEA [Suspect]
     Dosage: QID - 2 DAYS
     Dates: start: 20100105, end: 20100107
  2. ASPIRIN [Concomitant]
  3. MULTI-VITAMIN [Concomitant]
  4. VITAMIN E [Concomitant]
  5. AVALIDE [Concomitant]
  6. PLAVIX [Concomitant]
  7. METOPROLOL TARTRATE [Concomitant]
  8. ISOSORBIDE [Concomitant]
  9. LIPITOR [Concomitant]
  10. OMEPRAZOLE [Concomitant]
  11. ALLOPURINOL [Concomitant]
  12. SPIRIVA [Concomitant]
  13. IPRATROPIUM [Concomitant]

REACTIONS (1)
  - AGEUSIA [None]
